FAERS Safety Report 7795672-8 (Version None)
Quarter: 2011Q4

REPORT INFORMATION
  Report Type: 
  Country: None (occurrence: None)
  Receive Date: 20111004
  Receipt Date: 20110928
  Transmission Date: 20120403
  Serious: Yes (Other)
  Sender: FDA-Public Use
  Company Number: JP-GLAXOSMITHKLINE-B0751676A

PATIENT
  Age: 1 Year
  Sex: Female

DRUGS (2)
  1. FLOMOX [Concomitant]
     Route: 048
  2. ZOVIRAX [Suspect]
     Indication: ORAL HERPES
     Dosage: .4G PER DAY
     Route: 048
     Dates: start: 20110924, end: 20110926

REACTIONS (2)
  - AGRANULOCYTOSIS [None]
  - RASH [None]
